FAERS Safety Report 4495094-1 (Version None)
Quarter: 2004Q4

REPORT INFORMATION
  Report Type: 
  Country: None (occurrence: None)
  Receive Date: 20041105
  Receipt Date: 20041105
  Transmission Date: 20050328
  Serious: Yes (Other)
  Sender: FDA-Public Use
  Company Number: None

PATIENT
  Sex: Female
  Weight: 66 kg

DRUGS (2)
  1. INTRON A [Suspect]
     Indication: HEPATITIS C
     Dosage: 100MICROGR   WEEK    SUBCUTANEO
     Route: 058
     Dates: start: 20030323, end: 20040406
  2. RIBAVIRIN [Suspect]
     Dosage: 1000MG    DAY    ORAL
     Route: 048
     Dates: start: 20030323, end: 20040406

REACTIONS (2)
  - MYELODYSPLASTIC SYNDROME [None]
  - PANCYTOPENIA [None]
